FAERS Safety Report 5836420-8 (Version None)
Quarter: 2008Q3

REPORT INFORMATION
  Report Type: 
  Country: None (occurrence: None)
  Receive Date: 20080806
  Receipt Date: 20080806
  Transmission Date: 20090109
  Serious: No
  Sender: FDA-Public Use
  Company Number: None

PATIENT
  Sex: Male

DRUGS (14)
  1. REVLIMID [Suspect]
     Indication: MULTIPLE MYELOMA
     Dosage: 25MG DAILY X21D/28D PO
     Route: 048
     Dates: start: 20071121, end: 20080624
  2. METFORMIN HCL [Concomitant]
  3. METOPROLOL SUCCINATE [Concomitant]
  4. INSULIN R SLIDING SCALE [Concomitant]
  5. ALLOPURINOL [Concomitant]
  6. LISINOPRIL [Concomitant]
  7. LOVASTATIN [Concomitant]
  8. URACID [Concomitant]
  9. TERAZOSIN HCL [Concomitant]
  10. AMILORIDE HCL AND HYDROCHLOROTHIAZIDE [Concomitant]
  11. DEXAMETHASONE [Concomitant]
  12. ASPIRIN [Concomitant]
  13. ADVAIR DISKUS 100/50 [Concomitant]
  14. AZULFIDINE EN-TABS [Concomitant]

REACTIONS (5)
  - DISEASE PROGRESSION [None]
  - PNEUMONIA STREPTOCOCCAL [None]
  - STREPTOCOCCAL SEPSIS [None]
  - THROMBOCYTOPENIA [None]
  - UPPER RESPIRATORY TRACT INFECTION [None]
